FAERS Safety Report 23432861 (Version 1)
Quarter: 2024Q1

REPORT INFORMATION
  Report Type: Spontaneous
  Country: US (occurrence: None)
  Receive Date: 20240123
  Receipt Date: 20240123
  Transmission Date: 20240409
  Serious: Yes (Other)
  Sender: FDA-Public Use
  Company Number: None

PATIENT
  Age: 39 Year
  Sex: Male
  Weight: 108 kg

DRUGS (4)
  1. METOPROLOL SUCCINATE [Suspect]
     Active Substance: METOPROLOL SUCCINATE
     Indication: Heart rate increased
     Dosage: FREQUENCY : DAILY;?
     Route: 048
  2. B-Pap machine [Concomitant]
  3. VITAMIN C [Concomitant]
     Active Substance: ASCORBIC ACID
  4. Purple disc [Concomitant]

REACTIONS (6)
  - Weight increased [None]
  - Throat tightness [None]
  - Eating disorder [None]
  - Amnesia [None]
  - Amnesia [None]
  - Impaired work ability [None]

NARRATIVE: CASE EVENT DATE: 20240123
